FAERS Safety Report 7805060-3 (Version None)
Quarter: 2011Q4

REPORT INFORMATION
  Report Type: 
  Country: None (occurrence: None)
  Receive Date: 20111010
  Receipt Date: 20110929
  Transmission Date: 20120403
  Serious: Yes (Hospitalization, Disabling, Other)
  Sender: FDA-Public Use
  Company Number: BE-GLAXOSMITHKLINE-B0745489A

PATIENT
  Age: 82 Year
  Sex: Male

DRUGS (5)
  1. SIMVASTATIN [Suspect]
     Indication: PRODUCT USED FOR UNKNOWN INDICATION
     Dosage: 20MG PER DAY
     Route: 065
  2. AMLODIPINE [Concomitant]
     Dosage: 10MG PER DAY
     Route: 065
  3. PERINDOPRIL ERBUMINE [Concomitant]
     Dosage: 10MG PER DAY
     Route: 065
  4. ITRACONAZOLE [Suspect]
     Indication: ONYCHOMYCOSIS
     Dosage: 200MG TWICE PER DAY
     Route: 048
  5. SINTROM [Concomitant]
     Indication: INTERNATIONAL NORMALISED RATIO
     Dosage: 4MG AS REQUIRED
     Route: 065

REACTIONS (6)
  - ABASIA [None]
  - RHABDOMYOLYSIS [None]
  - DYSSTASIA [None]
  - ASTHENIA [None]
  - DRUG INTERACTION [None]
  - RENAL FAILURE [None]
